FAERS Safety Report 7239190-4 (Version None)
Quarter: 2011Q1

REPORT INFORMATION
  Report Type: 
  Country: None (occurrence: None)
  Receive Date: 20110121
  Receipt Date: 20110118
  Transmission Date: 20110831
  Serious: Yes (Hospitalization)
  Sender: FDA-Public Use
  Company Number: PHHY2011NL03967

PATIENT
  Sex: Female

DRUGS (2)
  1. ZOMETA [Suspect]
     Dosage: 4 MG
     Route: 041
     Dates: start: 20101216
  2. ZOMETA [Suspect]
     Indication: METASTASES TO BREAST
     Dosage: 4 MG
     Route: 041
     Dates: start: 20100504

REACTIONS (1)
  - PNEUMONIA [None]
